FAERS Safety Report 15407736 (Version 1)
Quarter: 2018Q4

REPORT INFORMATION
  Report Type: Spontaneous
  Country: CA (occurrence: CA)
  Receive Date: 20180920
  Receipt Date: 20180920
  Transmission Date: 20190204
  Serious: Yes (Other)
  Sender: FDA-Public Use
  Company Number: CA-BAUSCH-BL-2018-025152

PATIENT
  Age: 67 Year
  Sex: Female
  Weight: 47.67 kg

DRUGS (2)
  1. RETIN-A MICRO [Suspect]
     Active Substance: TRETINOIN
     Indication: DRY SKIN
  2. RETIN-A MICRO [Suspect]
     Active Substance: TRETINOIN
     Indication: MILIA
     Dosage: PUMP 50 GRAM, AS NEEDED
     Route: 061
     Dates: start: 20170120, end: 20180219

REACTIONS (3)
  - Milia [Not Recovered/Not Resolved]
  - Vein disorder [Not Recovered/Not Resolved]
  - Hair growth abnormal [Not Recovered/Not Resolved]

NARRATIVE: CASE EVENT DATE: 20180101
